FAERS Safety Report 15457827 (Version 1)
Quarter: 2018Q4

REPORT INFORMATION
  Report Type: Spontaneous
  Country: GB (occurrence: GB)
  Receive Date: 20181003
  Receipt Date: 20181003
  Transmission Date: 20190204
  Serious: Yes (Other)
  Sender: FDA-Public Use
  Company Number: GB-CONCORDIA PHARMACEUTICALS INC.-GSH201809-003402

PATIENT
  Age: 66 Year
  Sex: Female
  Weight: 76 kg

DRUGS (15)
  1. METHOTREXATE. [Concomitant]
     Active Substance: METHOTREXATE
  2. PREGABALIN. [Concomitant]
     Active Substance: PREGABALIN
  3. CO-AMOXICLAVE [Concomitant]
     Active Substance: AMOXICILLIN\CLAVULANATE POTASSIUM
  4. CYCLIZINE [Concomitant]
     Active Substance: CYCLIZINE
  5. PARACETAMOL [Concomitant]
     Active Substance: ACETAMINOPHEN
  6. CASSIA SENNA [Concomitant]
     Active Substance: HERBALS\SENNOSIDES
  7. ONDANSETRON [Concomitant]
     Active Substance: ONDANSETRON
  8. LANSOPRAZOLE. [Concomitant]
     Active Substance: LANSOPRAZOLE
  9. METOCLOPRAMIDE. [Concomitant]
     Active Substance: METOCLOPRAMIDE
  10. SALBUTAMOL [Concomitant]
     Active Substance: ALBUTEROL
  11. HYDROXYCHLOROQUINE [Suspect]
     Active Substance: HYDROXYCHLOROQUINE
     Indication: RHEUMATOID ARTHRITIS
     Route: 048
  12. CALCICHEW D3 [Concomitant]
     Active Substance: CALCIUM\CHOLECALCIFEROL
  13. RANITIDINE. [Concomitant]
     Active Substance: RANITIDINE
  14. ACIDEX [Concomitant]
     Active Substance: CALCIUM CARBONATE\SODIUM ALGINATE\SODIUM BICARBONATE
  15. METHADONE [Concomitant]
     Active Substance: METHADONE HYDROCHLORIDE

REACTIONS (2)
  - Visual impairment [Unknown]
  - Diplopia [Unknown]

NARRATIVE: CASE EVENT DATE: 201803
